FAERS Safety Report 10036348 (Version 1)
Quarter: 2014Q1

REPORT INFORMATION
  Report Type: Spontaneous
  Country: SE (occurrence: SE)
  Receive Date: 20140325
  Receipt Date: 20140325
  Transmission Date: 20141002
  Serious: Yes (Other)
  Sender: FDA-Public Use
  Company Number: PHHY2014SE032021

PATIENT
  Age: 6 Year
  Sex: Female

DRUGS (3)
  1. CISPLATIN [Suspect]
     Indication: GLIOMA
     Dosage: 300 MG/M2, UNK
  2. CARBOPLATIN [Suspect]
     Indication: GLIOMA
     Dosage: 4.4 G/M2
  3. CYCLOPHOSPHAMIDE [Suspect]
     Indication: GLIOMA
     Dosage: 4.5 G/M2

REACTIONS (1)
  - Ovarian disorder [Unknown]
